FAERS Safety Report 24384343 (Version 7)
Quarter: 2025Q3

REPORT INFORMATION
  Report Type: Spontaneous
  Country: US (occurrence: US)
  Receive Date: 20241001
  Receipt Date: 20250915
  Transmission Date: 20251020
  Serious: Yes (Disabling, Other)
  Sender: AMGEN
  Company Number: US-AMGEN-USASP2024190570

PATIENT
  Age: 72 Year
  Sex: Female
  Weight: 74 kg

DRUGS (33)
  1. TEPEZZA [Suspect]
     Active Substance: TEPROTUMUMAB-TRBW
     Indication: Graves^ disease
     Dosage: 770 MILLIGRAM, Q3WK, (FIRST INFUSION)
     Route: 042
     Dates: start: 20220701
  2. TEPEZZA [Suspect]
     Active Substance: TEPROTUMUMAB-TRBW
     Indication: Endocrine ophthalmopathy
     Dosage: 1500 MILLIGRAM, Q3WK, (SECOND INFUSION)
     Route: 042
     Dates: start: 20220728
  3. TEPEZZA [Suspect]
     Active Substance: TEPROTUMUMAB-TRBW
     Dosage: 1511 MILLIGRAM, Q3WK, (THIRD INFUSION)
     Route: 042
     Dates: start: 20220908
  4. TEPEZZA [Suspect]
     Active Substance: TEPROTUMUMAB-TRBW
     Dosage: 1520 MILLIGRAM, Q3WK, (FOURTH INFUSION)
     Route: 042
     Dates: start: 20220927
  5. TEPEZZA [Suspect]
     Active Substance: TEPROTUMUMAB-TRBW
     Dosage: 1520 MILLIGRAM, Q3WK, (FIFTH INFUSION)
     Route: 042
     Dates: start: 20221020
  6. TEPEZZA [Suspect]
     Active Substance: TEPROTUMUMAB-TRBW
     Route: 042
     Dates: start: 20221020
  7. TEPEZZA [Suspect]
     Active Substance: TEPROTUMUMAB-TRBW
     Dosage: 1520 MILLIGRAM, Q3WK, (SIXTH INFUSION)
     Route: 042
     Dates: start: 20221111
  8. TEPEZZA [Suspect]
     Active Substance: TEPROTUMUMAB-TRBW
     Dosage: 1566 MILLIGRAM, Q3WK, (UNK INFUSION)
     Route: 042
     Dates: start: 20221207
  9. TEPEZZA [Suspect]
     Active Substance: TEPROTUMUMAB-TRBW
     Dosage: 1561 MILLIGRAM, Q3WK, COMPLETED INFUSION)
     Route: 042
     Dates: start: 20221222, end: 20221222
  10. PREDNISONE [Suspect]
     Active Substance: PREDNISONE
     Indication: Product used for unknown indication
     Route: 065
     Dates: start: 2022
  11. LATANOPROST [Concomitant]
     Active Substance: LATANOPROST
     Route: 047
  12. TIMOLOL [Concomitant]
     Active Substance: TIMOLOL
     Route: 065
  13. TYRVAYA [Concomitant]
     Active Substance: VARENICLINE TARTRATE
     Dosage: UNK UNK, BID
     Route: 065
  14. LEVOTHYROXINE [Concomitant]
     Active Substance: LEVOTHYROXINE
     Dosage: 0.75 MILLIGRAM, QD
     Route: 048
  15. LEVOTHYROXINE [Concomitant]
     Active Substance: LEVOTHYROXINE
     Dosage: 75 MILLIGRAM, QD
     Route: 048
  16. ALBUTEROL SULFATE [Concomitant]
     Active Substance: ALBUTEROL SULFATE
  17. AZELASTINE [Concomitant]
     Active Substance: AZELASTINE
     Dosage: 137 MICROGRAM, AEROSOL
     Route: 045
  18. AZELASTINE [Concomitant]
     Active Substance: AZELASTINE
  19. CLARITIN [Concomitant]
     Active Substance: LORATADINE
     Route: 048
  20. VITAMIN D2 [Concomitant]
     Active Substance: ERGOCALCIFEROL
     Route: 048
  21. XANAX [Concomitant]
     Active Substance: ALPRAZOLAM
     Dosage: 0.5 MILLIGRAM, TID
     Route: 048
  22. SINEX [Concomitant]
     Active Substance: ACETAMINOPHEN\DOXYLAMINE SUCCINATE\PHENYLEPHRINE HYDROCHLORIDE
     Route: 065
  23. ALPRAZOLAM [Concomitant]
     Active Substance: ALPRAZOLAM
     Route: 048
  24. FISH OIL [Concomitant]
     Active Substance: FISH OIL
     Route: 065
  25. MELATONIN [Concomitant]
     Active Substance: MELATONIN
     Dosage: 10 MILLIGRAM, QHS
     Route: 048
  26. ROBITUSSIN (GUAIFENESIN) [Concomitant]
     Active Substance: GUAIFENESIN
     Route: 065
  27. BENADRYL [Concomitant]
     Active Substance: DIPHENHYDRAMINE HYDROCHLORIDE
     Route: 065
  28. UNISOM SLEEPTABS [Concomitant]
     Active Substance: DOXYLAMINE SUCCINATE
     Dosage: 25 MILLIGRAM, QHS
     Route: 048
  29. ZYRTEC [Concomitant]
     Active Substance: CETIRIZINE HYDROCHLORIDE
     Dosage: 10 MILLIGRAM, QD
     Route: 048
  30. FLONASE [Concomitant]
     Active Substance: FLUTICASONE PROPIONATE
     Dosage: UNK UNK, QD, (TWO SPRAYS)
     Route: 045
  31. LIVALO [Concomitant]
     Active Substance: PITAVASTATIN CALCIUM
     Dosage: 2 MILLIGRAM, QD
     Route: 048
  32. SODIUM CHLORIDE [Concomitant]
     Active Substance: SODIUM CHLORIDE
     Route: 065
  33. WATER FOR INJECTION [Concomitant]
     Active Substance: WATER
     Route: 065

REACTIONS (35)
  - Mixed deafness [Not Recovered/Not Resolved]
  - Endocrine ophthalmopathy [Unknown]
  - Graves^ disease [Unknown]
  - Sialoadenitis [Unknown]
  - Renal failure [Unknown]
  - Pain [Unknown]
  - Emotional distress [Unknown]
  - Anxiety [Unknown]
  - Discomfort [Unknown]
  - Impaired quality of life [Unknown]
  - Tinnitus [Not Recovered/Not Resolved]
  - Microangiopathy [Unknown]
  - Vitreous floaters [Unknown]
  - Blood cholesterol increased [Unknown]
  - Middle ear effusion [Unknown]
  - Adverse drug reaction [Unknown]
  - Myalgia [Unknown]
  - Tenderness [Unknown]
  - Blood alkaline phosphatase decreased [Unknown]
  - Anti-thyroid antibody increased [Unknown]
  - Vision blurred [Unknown]
  - High density lipoprotein decreased [Unknown]
  - Blood triglycerides increased [Unknown]
  - Low density lipoprotein increased [Unknown]
  - Non-high-density lipoprotein cholesterol increased [Unknown]
  - Visual impairment [Unknown]
  - Glare [Unknown]
  - Ocular hyperaemia [Unknown]
  - Product use complaint [Unknown]
  - Sinus congestion [Recovered/Resolved]
  - Sinus disorder [Recovered/Resolved]
  - Nervous system disorder [Unknown]
  - Musculoskeletal disorder [Unknown]
  - COVID-19 [Unknown]
  - Headache [Unknown]

NARRATIVE: CASE EVENT DATE: 20220101
